FAERS Safety Report 10969419 (Version 2)
Quarter: 2015Q3

REPORT INFORMATION
  Report Type: Report from Study
  Country: JP (occurrence: JP)
  Receive Date: 20150331
  Receipt Date: 20150713
  Transmission Date: 20151125
  Serious: Yes (Other)
  Sender: FDA-Public Use
  Company Number: JP-ROCHE-1038672

PATIENT

DRUGS (6)
  1. BEVACIZUMAB [Suspect]
     Active Substance: BEVACIZUMAB
     Indication: COLORECTAL CANCER METASTATIC
     Dosage: 5 MG/KG FOR 30-90 MINUTES ON DAY 1 EVERY 2 WEEKS IN FF4 AND FF6 ARMS AND 7.5 MG/KG FOR 30-90 MINUTES
     Route: 065
  2. LEUCOVORIN. [Suspect]
     Active Substance: LEUCOVORIN
     Indication: COLORECTAL CANCER METASTATIC
     Dosage: 100 MG/M2 FOR 2 HOURS IN FF4 ARM AND 200 MG/M2 FOR 2 HOURS IN FF6 ARM
     Route: 042
  3. 5-FLUOROURACIL [Suspect]
     Active Substance: FLUOROURACIL
     Dosage: 22-HOUR INFUSION OF 600 MG/M2 ON DAYS 1 AND 2 IN FF4 ARM AND A 46-HOUR INFUSION OF 2400 MG/M2 ON DAY
     Route: 042
  4. 5-FLUOROURACIL [Suspect]
     Active Substance: FLUOROURACIL
     Indication: COLORECTAL CANCER METASTATIC
     Route: 040
  5. OXALIPLATIN. [Suspect]
     Active Substance: OXALIPLATIN
     Indication: COLORECTAL CANCER METASTATIC
     Dosage: 85 MG/M2 FOR 2 HOURS ON DAY 1 IN FF4 AND FF6 ARM AND 130 MG/M2 FOR 2 HOURS ON DAY 1 IN XELOX ARM
     Route: 042
  6. CAPECITABINE. [Suspect]
     Active Substance: CAPECITABINE
     Indication: COLORECTAL CANCER METASTATIC
     Dosage: FOR 2 WEEKS FROM DAY 1
     Route: 048

REACTIONS (16)
  - Anaemia [Unknown]
  - Granulocytopenia [Unknown]
  - Neurotoxicity [Unknown]
  - Nausea [Unknown]
  - Vomiting [Unknown]
  - Hypertension [Unknown]
  - Arterial thrombosis [Unknown]
  - Fatigue [Unknown]
  - Haemorrhage [Unknown]
  - Palmar-plantar erythrodysaesthesia syndrome [Unknown]
  - Venous thrombosis [Unknown]
  - Proteinuria [Unknown]
  - Neutropenia [Unknown]
  - Diarrhoea [Unknown]
  - Febrile neutropenia [Unknown]
  - Thrombocytopenia [Unknown]
